FAERS Safety Report 12393368 (Version 1)
Quarter: 2016Q2

REPORT INFORMATION
  Report Type: Spontaneous
  Country: US (occurrence: None)
  Receive Date: 20160520
  Receipt Date: 20160520
  Transmission Date: 20160815
  Serious: Yes (Disabling)
  Sender: FDA-Public Use
  Company Number: None

PATIENT
  Age: 61 Year
  Sex: Female
  Weight: 72.58 kg

DRUGS (2)
  1. CIPROFLOXACIN. [Suspect]
     Active Substance: CIPROFLOXACIN
     Indication: KIDNEY INFECTION
     Dosage: 20 TABLET(S) TWICE A DAY TAKEN BY MOUTH
     Route: 048
     Dates: start: 20160511, end: 20160515
  2. CEFTIN [Concomitant]
     Active Substance: CEFUROXIME AXETIL

REACTIONS (12)
  - Nausea [None]
  - Dizziness [None]
  - Anxiety [None]
  - Neck pain [None]
  - Pain in extremity [None]
  - Feeling jittery [None]
  - Dyspepsia [None]
  - Myalgia [None]
  - Tendon pain [None]
  - Musculoskeletal pain [None]
  - Feeling abnormal [None]
  - Arthralgia [None]

NARRATIVE: CASE EVENT DATE: 20160513
